FAERS Safety Report 9312891 (Version 5)
Quarter: 2014Q2

REPORT INFORMATION
  Report Type: Spontaneous
  Country: US (occurrence: US)
  Receive Date: 20130528
  Receipt Date: 20140609
  Transmission Date: 20141212
  Serious: No
  Sender: FDA-Public Use
  Company Number: US-009507513-1305USA013026

PATIENT
  Sex: Male

DRUGS (1)
  1. PROPECIA [Suspect]
     Indication: ALOPECIA
     Dosage: 1 MG, UNK
     Route: 048
     Dates: start: 199710, end: 199803

REACTIONS (13)
  - Brain injury [Unknown]
  - Soft tissue injury [Unknown]
  - Hormone level abnormal [Unknown]
  - Hypertension [Unknown]
  - Blood glucose increased [Unknown]
  - Oedema peripheral [Unknown]
  - Sexual dysfunction [Not Recovered/Not Resolved]
  - Erectile dysfunction [Not Recovered/Not Resolved]
  - Libido decreased [Unknown]
  - Testicular pain [Not Recovered/Not Resolved]
  - Benign prostatic hyperplasia [Not Recovered/Not Resolved]
  - Toe operation [Unknown]
  - Foot deformity [Unknown]
